FAERS Safety Report 5055207-X (Version None)
Quarter: 2006Q3

REPORT INFORMATION
  Report Type: 
  Country: None (occurrence: None)
  Receive Date: 20060713
  Receipt Date: 20060626
  Transmission Date: 20061208
  Serious: Yes (Death)
  Sender: FDA-Public Use
  Company Number: WAES 0606USA02432

PATIENT
  Age: 81 Year
  Sex: Female

DRUGS (6)
  1. FOSAMAX [Suspect]
     Indication: OSTEOPOROSIS
     Dosage: 5 MG/DAILY
     Route: 048
     Dates: start: 20050209, end: 20060319
  2. ALFAROL (ALFACALCIDOL) [Suspect]
     Indication: OSTEOPOROSIS
     Dosage: 1 MICROGM/DAILY
     Route: 048
     Dates: start: 20050209, end: 20060319
  3. GASTER [Concomitant]
  4. PURSENNID [Concomitant]
  5. QVAR 40 [Concomitant]
  6. SEREVENT [Concomitant]

REACTIONS (3)
  - CHRONIC RESPIRATORY FAILURE [None]
  - CONDITION AGGRAVATED [None]
  - PNEUMONIA [None]
